FAERS Safety Report 9777374 (Version 3)
Quarter: 2014Q2

REPORT INFORMATION
  Report Type: Spontaneous
  Country: CN (occurrence: CN)
  Receive Date: 20131221
  Receipt Date: 20140515
  Transmission Date: 20141212
  Serious: Yes (Other)
  Sender: FDA-Public Use
  Company Number: PHHY2013CN147637

PATIENT
  Age: 79 Year
  Sex: Female

DRUGS (2)
  1. MIACALCIC [Suspect]
     Indication: OSTEOPOROSIS
     Dosage: 1 DF
     Route: 030
     Dates: start: 20131206, end: 20131207
  2. MIACALCIC [Suspect]
     Indication: BONE PAIN

REACTIONS (7)
  - Shock [Recovering/Resolving]
  - Skin reaction [Recovered/Resolved]
  - Flushing [Recovering/Resolving]
  - Asthenia [Recovering/Resolving]
  - Vomiting [Recovering/Resolving]
  - Nausea [Recovering/Resolving]
  - Feeling hot [Recovered/Resolved]
